FAERS Safety Report 9360053 (Version 3)
Quarter: 2013Q3

REPORT INFORMATION
  Report Type: Spontaneous
  Country: US (occurrence: US)
  Receive Date: 20130621
  Receipt Date: 20130724
  Transmission Date: 20140515
  Serious: Yes (Other)
  Sender: FDA-Public Use
  Company Number: US-PFIZER INC-2013182512

PATIENT
  Sex: Male

DRUGS (4)
  1. TOVIAZ [Suspect]
     Indication: POLLAKIURIA
     Dosage: 4 MG, UNK
     Route: 048
     Dates: start: 2013, end: 2013
  2. TOVIAZ [Suspect]
     Indication: URINARY INCONTINENCE
  3. TOVIAZ [Suspect]
     Indication: POLLAKIURIA
  4. FLOMAX [Concomitant]
     Indication: PROSTATOMEGALY
     Dosage: UNK

REACTIONS (3)
  - Urinary retention [Unknown]
  - Micturition disorder [Unknown]
  - Drug ineffective [Unknown]
